FAERS Safety Report 8139472-8 (Version None)
Quarter: 2012Q1

REPORT INFORMATION
  Report Type: 
  Country: None (occurrence: None)
  Receive Date: 20120215
  Receipt Date: 20120203
  Transmission Date: 20120608
  Serious: Yes (Life-Threatening)
  Sender: FDA-Public Use
  Company Number: ES-BAUSCH-2012BL000949

PATIENT
  Age: 32 Week
  Sex: Male
  Weight: 10 kg

DRUGS (6)
  1. ALBUTEROL SULATE [Suspect]
     Indication: RESPIRATORY DISTRESS
     Route: 049
     Dates: start: 20040701, end: 20040101
  2. METHYLPREDNISOLONE [Suspect]
     Indication: RESPIRATORY DISTRESS
     Route: 042
     Dates: start: 20040701, end: 20040101
  3. ALBUTEROL SULATE [Suspect]
     Indication: ASTHMA
     Route: 049
     Dates: start: 20040701, end: 20040101
  4. IPRATROPIUM BROMIDE [Suspect]
     Indication: RESPIRATORY DISTRESS
     Route: 049
     Dates: start: 20040701, end: 20040701
  5. IPRATROPIUM BROMIDE [Suspect]
     Indication: ASTHMA
     Route: 049
     Dates: start: 20040701, end: 20040701
  6. METHYLPREDNISOLONE [Suspect]
     Indication: ASTHMA
     Route: 042
     Dates: start: 20040701, end: 20040101

REACTIONS (3)
  - PNEUMONIA [None]
  - CONDITION AGGRAVATED [None]
  - RESPIRATORY FAILURE [None]
